FAERS Safety Report 15049019 (Version 1)
Quarter: 2018Q2

REPORT INFORMATION
  Report Type: Report from Study
  Country: MX (occurrence: MX)
  Receive Date: 20180622
  Receipt Date: 20180622
  Transmission Date: 20180711
  Serious: Yes (Hospitalization)
  Sender: FDA-Public Use
  Company Number: PHHY2018MX025981

PATIENT
  Age: 74 Year
  Sex: Female
  Weight: 70 kg

DRUGS (9)
  1. METFORMIN [Concomitant]
     Active Substance: METFORMIN HYDROCHLORIDE
     Indication: PRODUCT USED FOR UNKNOWN INDICATION
     Dosage: 0.5 DF, UNK
     Route: 065
     Dates: start: 200911
  2. GALVUS [Suspect]
     Active Substance: VILDAGLIPTIN
     Dosage: 0.75 DF, UNK
     Route: 065
  3. CARBAMAZEPINE. [Suspect]
     Active Substance: CARBAMAZEPINE
     Indication: NERVOUS SYSTEM DISORDER
     Dosage: 0.5 DF, BID (HALF IN THE MORNING AND HALF AT NIGHT)
     Route: 048
     Dates: start: 2009
  4. ATORVASTATIN [Suspect]
     Active Substance: ATORVASTATIN
     Indication: BLOOD CHOLESTEROL INCREASED
     Dosage: 1 DF, QD
     Route: 065
  5. ACARBOSE. [Concomitant]
     Active Substance: ACARBOSE
     Indication: PRODUCT USED FOR UNKNOWN INDICATION
     Route: 065
  6. LOSARTAN. [Concomitant]
     Active Substance: LOSARTAN
     Indication: HYPERTENSION
     Dosage: 4 DF, QD (2 IN THE MORNING AND 2 AT NIGHT)
     Route: 065
     Dates: start: 2009
  7. GALVUS [Suspect]
     Active Substance: VILDAGLIPTIN
     Dosage: 0.5 DF (50 MG), QD
     Route: 065
  8. GALVUS [Suspect]
     Active Substance: VILDAGLIPTIN
     Dosage: 0.5 DF (50 MG), QD
     Route: 048
  9. GALVUS [Suspect]
     Active Substance: VILDAGLIPTIN
     Indication: DIABETES MELLITUS
     Dosage: 50 MG, QD
     Route: 065

REACTIONS (7)
  - Vomiting [Recovered/Resolved]
  - Blood sodium decreased [Recovered/Resolved]
  - Blood glucose decreased [Recovered/Resolved]
  - Drug prescribing error [Unknown]
  - Wrong technique in product usage process [Unknown]
  - Sciatic nerve neuropathy [Recovered/Resolved]
  - Hypotension [Recovered/Resolved]

NARRATIVE: CASE EVENT DATE: 201702
